FAERS Safety Report 18727797 (Version 2)
Quarter: 2021Q1

REPORT INFORMATION
  Report Type: Spontaneous
  Country: US (occurrence: US)
  Receive Date: 20210111
  Receipt Date: 20210215
  Transmission Date: 20210419
  Serious: No
  Sender: FDA-Public Use
  Company Number: US-PFIZER INC-2021013507

PATIENT
  Age: 41 Year
  Sex: Female

DRUGS (1)
  1. XELJANZ [Suspect]
     Active Substance: TOFACITINIB CITRATE
     Dosage: 5 MG
     Dates: start: 20201204

REACTIONS (3)
  - Product dose omission in error [Unknown]
  - Condition aggravated [Unknown]
  - Gingival bleeding [Unknown]
